FAERS Safety Report 24854096 (Version 2)
Quarter: 2025Q3

REPORT INFORMATION
  Report Type: Spontaneous
  Country: EU (occurrence: EU)
  Receive Date: 20250117
  Receipt Date: 20250810
  Transmission Date: 20251021
  Serious: Yes (Other)
  Sender: ALEXION PHARMACEUTICALS
  Company Number: None

PATIENT
  Age: 67 Year
  Sex: Female

DRUGS (2)
  1. CALQUENCE [Suspect]
     Active Substance: ACALABRUTINIB
     Indication: Chronic lymphocytic leukaemia
     Dosage: 100 UNK, BID
  2. Sulphamethizole [Concomitant]
     Indication: Hyperthyroidism

REACTIONS (5)
  - Hyperthyroidism [Unknown]
  - Upper respiratory tract infection [Unknown]
  - Beta 2 microglobulin increased [Unknown]
  - Blood thyroid stimulating hormone decreased [Unknown]
  - Hypertension [Unknown]
